FAERS Safety Report 20570228 (Version 1)
Quarter: 2022Q1

REPORT INFORMATION
  Report Type: Spontaneous
  Country: DE (occurrence: DE)
  Receive Date: 20220309
  Receipt Date: 20220309
  Transmission Date: 20220424
  Serious: Yes (Hospitalization)
  Sender: FDA-Public Use
  Company Number: DE-drreddys-LIT/GER/22/0147539

PATIENT
  Age: 31 Year
  Sex: Male

DRUGS (11)
  1. CLOZAPINE [Suspect]
     Active Substance: CLOZAPINE
     Indication: Schizophrenia
     Dosage: 50-50-100 MG/DAY
  2. CLOZAPINE [Suspect]
     Active Substance: CLOZAPINE
     Dosage: RECEIVED CLOZAPINE AGAIN UNDER SUPERVISION OF HOSPITAL STAFF
     Dates: end: 2018
  3. CLOZAPINE [Suspect]
     Active Substance: CLOZAPINE
     Dosage: IN COMBINATION WITH AMISULPRIDE 300 MG/DAILY
  4. CLOZAPINE [Suspect]
     Active Substance: CLOZAPINE
     Dosage: CARIPRAZINE ALONG WITH CLOZAPINE AND AMISULPRIDE
     Dates: start: 2019
  5. CLOZAPINE [Suspect]
     Active Substance: CLOZAPINE
     Dosage: DOSE WAS REDUCED TO 75MG.
  6. CLOZAPINE [Suspect]
     Active Substance: CLOZAPINE
     Dosage: REDUCED TO 50MG DAILY
  7. OLANZAPINE [Suspect]
     Active Substance: OLANZAPINE
     Indication: Schizophrenia
     Dates: start: 2010
  8. OLANZAPINE [Suspect]
     Active Substance: OLANZAPINE
     Dosage: DOSE OF OLANZAPINE WAS INCREASED
  9. AMISULPRIDE [Suspect]
     Active Substance: AMISULPRIDE
     Indication: Schizophrenia
  10. AMISULPRIDE [Suspect]
     Active Substance: AMISULPRIDE
     Dates: start: 2019
  11. AMISULPRIDE [Suspect]
     Active Substance: AMISULPRIDE
     Dosage: TAPERED OFF

REACTIONS (3)
  - Schizophrenia [Recovered/Resolved]
  - Rebound psychosis [Recovered/Resolved]
  - Drug ineffective [Unknown]
